FAERS Safety Report 5629107-8 (Version None)
Quarter: 2008Q1

REPORT INFORMATION
  Report Type: 
  Country: None (occurrence: None)
  Receive Date: 20080216
  Receipt Date: 20080205
  Transmission Date: 20080703
  Serious: No
  Sender: FDA-Public Use
  Company Number: US-BAXTER-2008BH001090

PATIENT
  Age: 52 Year
  Sex: Male
  Weight: 99 kg

DRUGS (7)
  1. HEPARIN SODIUM [Suspect]
     Indication: ANTICOAGULANT THERAPY
     Dosage: DOSE UNIT:UNKNOWN
     Route: 042
     Dates: start: 20080114, end: 20080114
  2. NITROGLYCERIN [Concomitant]
     Indication: CATHETERISATION CARDIAC
     Dosage: DOSE UNIT:UNKNOWN
     Route: 042
  3. INTEGRILIN [Concomitant]
     Indication: ACUTE CORONARY SYNDROME
     Dosage: DOSE UNIT:UNKNOWN
     Route: 042
  4. ZOCOR [Concomitant]
     Indication: HYPERCHOLESTEROLAEMIA
     Dosage: DOSE UNIT:UNKNOWN
     Route: 048
  5. ASPIRIN [Concomitant]
     Indication: CORONARY ARTERY DISEASE
     Dosage: DOSE UNIT:UNKNOWN
     Route: 048
  6. LOPRESSOR [Concomitant]
     Indication: HYPERTENSION
     Dosage: DOSE UNIT:UNKNOWN
     Route: 048
  7. LISINOPRIL [Concomitant]
     Indication: DRUG USE FOR UNKNOWN INDICATION
     Dosage: DOSE UNIT:UNKNOWN
     Route: 048

REACTIONS (1)
  - ABDOMINAL PAIN UPPER [None]
